FAERS Safety Report 21958795 (Version 1)
Quarter: 2023Q1

REPORT INFORMATION
  Report Type: Spontaneous
  Country: CN (occurrence: CN)
  Receive Date: 20230206
  Receipt Date: 20230206
  Transmission Date: 20230418
  Serious: Yes (Hospitalization, Other)
  Sender: FDA-Public Use
  Company Number: CN-GLAXOSMITHKLINE-CNCH2023APC004199

PATIENT
  Age: 20 Year
  Sex: Male
  Weight: 84 kg

DRUGS (2)
  1. VOLTAREN [Suspect]
     Active Substance: DICLOFENAC SODIUM
     Indication: Pain in extremity
     Dosage: 1 DOSAGE FORM, QD
     Route: 048
     Dates: start: 20230104, end: 20230104
  2. PHENYLBUTAZONE [Suspect]
     Active Substance: PHENYLBUTAZONE
     Indication: Pain in extremity
     Dosage: 1 DOSAGE FORM, QD
     Route: 048
     Dates: start: 20230104, end: 20230104

REACTIONS (9)
  - Erythema multiforme [Recovering/Resolving]
  - Drug eruption [Recovering/Resolving]
  - Oral mucosal blistering [Recovering/Resolving]
  - Oral mucosa erosion [Recovering/Resolving]
  - Blister [Recovering/Resolving]
  - Pain [Recovering/Resolving]
  - Skin erosion [Recovering/Resolving]
  - Rash [Recovering/Resolving]
  - Erythema [Recovering/Resolving]

NARRATIVE: CASE EVENT DATE: 20230104
